FAERS Safety Report 12807293 (Version 1)
Quarter: 2016Q4

REPORT INFORMATION
  Report Type: Spontaneous
  Country: US (occurrence: US)
  Receive Date: 20161003
  Receipt Date: 20161003
  Transmission Date: 20170207
  Serious: Yes (Death)
  Sender: FDA-Public Use
  Company Number: None

PATIENT
  Age: 75 Year
  Sex: Female

DRUGS (16)
  1. FLUTICASONE [Concomitant]
     Active Substance: FLUTICASONE\FLUTICASONE PROPIONATE
  2. GABAPENTIN. [Concomitant]
     Active Substance: GABAPENTIN
  3. LOPERAMIDE [Concomitant]
     Active Substance: LOPERAMIDE
  4. LORAZEPAM. [Concomitant]
     Active Substance: LORAZEPAM
  5. ZOLPIDEM [Concomitant]
     Active Substance: ZOLPIDEM\ZOLPIDEM TARTRATE
  6. IBRANCE [Suspect]
     Active Substance: PALBOCICLIB
     Indication: BREAST CANCER
     Dosage: 125 MG QD1-21 THEN 7 OFF ORAL
     Route: 048
     Dates: start: 20160830, end: 201609
  7. FENTANYL. [Concomitant]
     Active Substance: FENTANYL
  8. ACETAMIN [Concomitant]
     Active Substance: ACETAMINOPHEN
  9. LOMOTIL [Concomitant]
     Active Substance: ATROPINE SULFATE\DIPHENOXYLATE HYDROCHLORIDE
  10. PAROXETINE. [Concomitant]
     Active Substance: PAROXETINE
  11. FASLODEX [Concomitant]
     Active Substance: FULVESTRANT
  12. DOCUSATE [Concomitant]
     Active Substance: DOCUSATE
  13. FLUOXETINE [Concomitant]
     Active Substance: FLUOXETINE HYDROCHLORIDE
  14. A-HYDROCORT [Concomitant]
     Active Substance: HYDROCORTISONE SODIUM SUCCINATE
  15. ONDANSETRON [Concomitant]
     Active Substance: ONDANSETRON
  16. RANITIDINE. [Concomitant]
     Active Substance: RANITIDINE

REACTIONS (1)
  - Death [None]

NARRATIVE: CASE EVENT DATE: 201609
